FAERS Safety Report 9086065 (Version 1)
Quarter: 2013Q1

REPORT INFORMATION
  Report Type: Report from Study
  Country: US (occurrence: US)
  Receive Date: 20130131
  Receipt Date: 20130131
  Transmission Date: 20140127
  Serious: No
  Sender: FDA-Public Use
  Company Number: US-ABBOTT-12P-163-0995379-00

PATIENT
  Sex: Female
  Weight: 49.03 kg

DRUGS (3)
  1. HUMIRA [Suspect]
     Indication: SPONDYLOARTHROPATHY
     Route: 058
     Dates: start: 201206
  2. METHOTREXATE [Concomitant]
     Indication: SPONDYLOARTHROPATHY
  3. CELEBREX [Concomitant]
     Indication: SPONDYLOARTHROPATHY

REACTIONS (1)
  - Off label use [Unknown]
